FAERS Safety Report 4590991-0 (Version None)
Quarter: 2005Q1

REPORT INFORMATION
  Report Type: 
  Country: None (occurrence: None)
  Receive Date: 20050218
  Receipt Date: 20050210
  Transmission Date: 20050727
  Serious: Yes (Life-Threatening, Hospitalization)
  Sender: FDA-Public Use
  Company Number: 2005028202

PATIENT
  Age: 70 Year
  Sex: Male

DRUGS (3)
  1. FOSPHENYTOIN SODIUM [Suspect]
     Indication: ILL-DEFINED DISORDER
     Dosage: PARENTERAL
     Route: 051
     Dates: start: 20041109, end: 20041109
  2. CARBAMAZEPINE [Suspect]
     Indication: EPILEPSY
     Dosage: 200 MG, ORAL
     Route: 048
     Dates: start: 20000101, end: 20041109
  3. DIAZEPAM [Concomitant]

REACTIONS (2)
  - ATRIOVENTRICULAR BLOCK [None]
  - PULSE ABSENT [None]
